FAERS Safety Report 7893501-5 (Version None)
Quarter: 2011Q4

REPORT INFORMATION
  Report Type: 
  Country: None (occurrence: None)
  Receive Date: 20111104
  Receipt Date: 20111102
  Transmission Date: 20120403
  Serious: Yes (Hospitalization)
  Sender: FDA-Public Use
  Company Number: US-BRISTOL-MYERS SQUIBB COMPANY-14595904

PATIENT
  Age: 50 Year
  Sex: Male
  Weight: 79 kg

DRUGS (2)
  1. ERBITUX [Suspect]
     Indication: PHARYNGEAL CANCER STAGE UNSPECIFIED
     Dosage: 400MG/M2:1/30/09WKLY,250MG/M2, 1ST :30JAN09 11MAR09 TOT COUR:7 LAST DOSE:11MAR09
     Route: 042
     Dates: start: 20090130
  2. CISPLATIN [Suspect]
     Indication: PHARYNGEAL CANCER STAGE UNSPECIFIED
     Dosage: 100MG/M2 ON DAY 1 + 22 OF RADIATIN. NO OF COURSE:7 1ST COU:30JAN09 11MAR09 LAST DOSE:25FEB09
     Route: 042
     Dates: start: 20090130

REACTIONS (4)
  - ORAL PAIN [None]
  - RADIATION SKIN INJURY [None]
  - OROPHARYNGEAL PAIN [None]
  - GINGIVAL INFECTION [None]
